FAERS Safety Report 5320341-3 (Version None)
Quarter: 2007Q1

REPORT INFORMATION
  Report Type: 
  Country: None (occurrence: None)
  Receive Date: 20070215
  Receipt Date: 20060919
  Transmission Date: 20070707
  Serious: Yes (Other)
  Sender: FDA-Public Use
  Company Number: MC200600659

PATIENT
  Sex: Female

DRUGS (4)
  1. ANGIOMAX [Suspect]
     Indication: CORONARY ANGIOPLASTY
     Dates: start: 20060901, end: 20060901
  2. PLAVIX [Concomitant]
  3. CONTRAST MEDIA [Concomitant]
  4. UNSPECIFIED ANALGESIC [Concomitant]

REACTIONS (2)
  - HYPERSENSITIVITY [None]
  - STENT OCCLUSION [None]
